FAERS Safety Report 7775415-4 (Version None)
Quarter: 2011Q3

REPORT INFORMATION
  Report Type: 
  Country: None (occurrence: None)
  Receive Date: 20110923
  Receipt Date: 20110919
  Transmission Date: 20111222
  Serious: Yes (Hospitalization)
  Sender: FDA-Public Use
  Company Number: PHHO2011FR15997

PATIENT
  Sex: Male
  Weight: 102 kg

DRUGS (7)
  1. APROVEL [Concomitant]
     Indication: HYPERTENSION
     Dosage: UNK
     Dates: start: 20100101
  2. CELLUVISC [Concomitant]
     Indication: DRY EYE
     Dosage: UNK
     Dates: start: 19580101
  3. ACETAMINOPHEN AND TRAMADOL HCL [Concomitant]
     Indication: ANALGESIC THERAPY
     Dosage: UNK
     Dates: start: 20090101, end: 20101124
  4. PREVISCAN [Concomitant]
     Indication: PROPHYLAXIS
     Dosage: UNK
     Dates: start: 20070101
  5. NEBIVOLOL HCL [Concomitant]
     Indication: HYPERTENSION
     Dosage: UNK
     Dates: start: 20070101
  6. FLUTIBACT [Concomitant]
     Indication: DRY EYE
     Dosage: UNK
     Dates: start: 19580101
  7. TASIGNA [Suspect]
     Indication: CHRONIC MYELOID LEUKAEMIA
     Dosage: 600 MG, QD
     Dates: start: 20101124, end: 20110918

REACTIONS (1)
  - TACHYCARDIA [None]
